FAERS Safety Report 5297267-7 (Version None)
Quarter: 2007Q2

REPORT INFORMATION
  Report Type: 
  Country: None (occurrence: None)
  Receive Date: 20070416
  Receipt Date: 20070402
  Transmission Date: 20071010
  Serious: Yes (Hospitalization, Other)
  Sender: FDA-Public Use
  Company Number: JP-JNJFOC-20070300710

PATIENT
  Sex: Male

DRUGS (6)
  1. POLLAKISU [Suspect]
     Indication: NEUROGENIC BLADDER
     Route: 048
  2. FLIVAS [Concomitant]
     Indication: BENIGN PROSTATIC HYPERPLASIA
     Route: 048
  3. HACHIMIJIO-GAN [Concomitant]
     Indication: POLLAKIURIA
     Route: 048
  4. ATELEC [Concomitant]
     Indication: HYPERTENSION
     Route: 048
  5. AMOBAN [Concomitant]
     Indication: INSOMNIA
     Route: 048
  6. EPADEL [Concomitant]
     Indication: ANGINA PECTORIS
     Route: 048

REACTIONS (1)
  - IDIOPATHIC THROMBOCYTOPENIC PURPURA [None]
